FAERS Safety Report 10154844 (Version 1)
Quarter: 2014Q2

REPORT INFORMATION
  Report Type: Spontaneous
  Country: US (occurrence: None)
  Receive Date: 20140505
  Receipt Date: 20140505
  Transmission Date: 20141212
  Serious: No
  Sender: FDA-Public Use
  Company Number: None

PATIENT
  Sex: Female

DRUGS (7)
  1. HUMIRA [Suspect]
     Indication: RHEUMATOID ARTHRITIS
     Dosage: EVERY TWO WEEKS
  2. CYMBALTA [Concomitant]
  3. SYNTHROID [Concomitant]
  4. ESTRADIOL [Concomitant]
  5. MULTIVITAMIN [Concomitant]
  6. ZETIA [Concomitant]
  7. REQUIP [Concomitant]

REACTIONS (2)
  - Increased tendency to bruise [None]
  - Coagulation time prolonged [None]
